FAERS Safety Report 7961235-4 (Version None)
Quarter: 2011Q4

REPORT INFORMATION
  Report Type: 
  Country: None (occurrence: None)
  Receive Date: 20111207
  Receipt Date: 20111206
  Transmission Date: 20120403
  Serious: Yes (Other)
  Sender: FDA-Public Use
  Company Number: PL-ASTRAZENECA-2011SE64273

PATIENT
  Age: 14176 Day
  Sex: Male

DRUGS (16)
  1. BISOPROLOL FUMARATE [Concomitant]
     Indication: HYPERTENSION
     Route: 048
  2. LOPERAMIDE HCL [Concomitant]
     Indication: DIARRHOEA
     Route: 048
  3. KALIPOZ [Concomitant]
     Indication: DIARRHOEA
     Route: 048
  4. SANDOSTATIN LAR [Concomitant]
     Indication: DIARRHOEA
     Route: 030
     Dates: start: 20110421
  5. HYDROCORTISONE [Concomitant]
     Indication: ADRENALECTOMY
     Route: 048
  6. CALPEROS [Concomitant]
     Indication: HYPOPARATHYROIDISM
     Route: 048
  7. RAMIPRIL [Concomitant]
     Indication: HYPERTENSION
     Route: 048
  8. KALIPOZ [Concomitant]
     Indication: HYPOKALAEMIA
     Route: 048
  9. LEVOTHYROXINE SODIUM [Concomitant]
     Indication: HYPOTHYROIDISM
     Route: 048
     Dates: end: 20110908
  10. LEVOTHYROXINE SODIUM [Concomitant]
     Route: 048
     Dates: start: 20110920
  11. ALFADIOL [Concomitant]
     Route: 048
     Dates: start: 20110708
  12. LEVOTHYROXINE SODIUM [Concomitant]
     Route: 048
     Dates: start: 20110909, end: 20110919
  13. CALPEROS [Concomitant]
     Route: 048
     Dates: start: 20110908
  14. VANDETANIB [Suspect]
     Indication: THYROID CANCER
     Route: 048
     Dates: start: 20110726
  15. ALFADIOL [Concomitant]
     Indication: HYPOPARATHYROIDISM
     Route: 048
     Dates: end: 20110707
  16. BONEFOS [Concomitant]
     Indication: METASTASES TO BONE
     Route: 048

REACTIONS (1)
  - GLOMERULONEPHRITIS [None]
